FAERS Safety Report 5520961-7 (Version None)
Quarter: 2007Q4

REPORT INFORMATION
  Report Type: 
  Country: None (occurrence: None)
  Receive Date: 20071115
  Receipt Date: 20071109
  Transmission Date: 20080405
  Serious: Yes (Death)
  Sender: FDA-Public Use
  Company Number: TPA2007A02325

PATIENT
  Age: 74 Year
  Sex: Female

DRUGS (13)
  1. ACTOS [Suspect]
     Indication: DIABETES MELLITUS INADEQUATE CONTROL
     Dosage: 15 MG, PER ORAL
     Route: 048
  2. NEXIUM (ESOMEPRAZOLE MAGNESIUM) (CAPSULES) [Concomitant]
  3. ACETAMINOPHEN/COD #3 (CODEINE, PARACETAMOL) (TABLETS) [Concomitant]
  4. FLUTICASONE (FLUTICASONE) (NASAL DROPS (INCLUDING NASAL SPRAY)) [Concomitant]
  5. OMEPRAZOLE [Concomitant]
  6. DIPHENHYDRAMINE (DIPHENHYDRAMINE) (CAPSULES) [Concomitant]
  7. LUMIGAN (BIMATOPROST) (0.03 PERCENT, EYE DROPS) [Concomitant]
  8. IBUPROFEN [Concomitant]
  9. PROMETHAZINE (PROMETHAZINE) (TABLETS) [Concomitant]
  10. LIPITOR [Concomitant]
  11. CIPROFLOXACIN HCL (CIPROFLOXACIN HYDROCHLORIDE) [Concomitant]
  12. AMLODIPINE BESYLATE [Concomitant]
  13. HYDROCORTISONE [Concomitant]

REACTIONS (2)
  - ACUTE MYOCARDIAL INFARCTION [None]
  - WEIGHT INCREASED [None]
